FAERS Safety Report 15910193 (Version 1)
Quarter: 2019Q1

REPORT INFORMATION
  Report Type: Spontaneous
  Country: US (occurrence: US)
  Receive Date: 20190204
  Receipt Date: 20190204
  Transmission Date: 20190417
  Serious: No
  Sender: FDA-Public Use
  Company Number: US-ABBVIE-18K-163-2340024-00

PATIENT
  Age: 62 Year
  Sex: Female

DRUGS (6)
  1. HUMIRA [Suspect]
     Active Substance: ADALIMUMAB
     Indication: PSORIASIS
     Route: 058
     Dates: start: 20180309, end: 20180313
  2. IRON [Concomitant]
     Active Substance: IRON
     Indication: MINERAL SUPPLEMENTATION
  3. COD LIVER OIL [Concomitant]
     Active Substance: COD LIVER OIL
     Indication: SUPPLEMENTATION THERAPY
  4. COENZYME Q10 [Concomitant]
     Active Substance: UBIDECARENONE
     Indication: SUPPLEMENTATION THERAPY
  5. RED CLOVER [Concomitant]
     Active Substance: RED CLOVER\DIETARY SUPPLEMENT
     Indication: PHYTOTHERAPY
  6. VEGEN PRIMROSE OIL [Concomitant]
     Indication: PHYTOTHERAPY

REACTIONS (5)
  - Tooth extraction [Unknown]
  - Bone loss [Not Recovered/Not Resolved]
  - Foreign body in gastrointestinal tract [Unknown]
  - Tooth infection [Recovering/Resolving]
  - Toothache [Recovered/Resolved]

NARRATIVE: CASE EVENT DATE: 2018
